FAERS Safety Report 20318579 (Version 1)
Quarter: 2022Q1

REPORT INFORMATION
  Report Type: Spontaneous
  Country: CA (occurrence: CA)
  Receive Date: 20220110
  Receipt Date: 20220110
  Transmission Date: 20220423
  Serious: Yes (Hospitalization)
  Sender: FDA-Public Use
  Company Number: CA-JNJFOC-20220110002

PATIENT
  Age: 72 Year
  Sex: Female
  Weight: 70 kg

DRUGS (1)
  1. REMICADE [Suspect]
     Active Substance: INFLIXIMAB
     Indication: Crohn^s disease
     Route: 042

REACTIONS (12)
  - Diverticulum [Unknown]
  - Cystitis [Unknown]
  - Balance disorder [Unknown]
  - Fall [Unknown]
  - Hand fracture [Unknown]
  - Wrist fracture [Unknown]
  - Patella fracture [Unknown]
  - Weight decreased [Unknown]
  - Flatulence [Unknown]
  - Condition aggravated [Unknown]
  - Constipation [Unknown]
  - Off label use [Unknown]
